FAERS Safety Report 17132820 (Version 1)
Quarter: 2019Q4

REPORT INFORMATION
  Report Type: Spontaneous
  Country: US (occurrence: US)
  Receive Date: 20191210
  Receipt Date: 20191210
  Transmission Date: 20200122
  Serious: Yes (Other)
  Sender: FDA-Public Use
  Company Number: US-SA-2019SA338280

PATIENT
  Sex: Male

DRUGS (1)
  1. DULCOLAX (BISACODYL) [Suspect]
     Active Substance: BISACODYL
     Dosage: UNK

REACTIONS (4)
  - Chronic kidney disease [Unknown]
  - Bowel movement irregularity [Unknown]
  - Constipation [Unknown]
  - Abdominal pain upper [Recovered/Resolved]
